FAERS Safety Report 6973504-5 (Version None)
Quarter: 2010Q3

REPORT INFORMATION
  Report Type: 
  Country: None (occurrence: None)
  Receive Date: 20100909
  Receipt Date: 20100906
  Transmission Date: 20110219
  Serious: Yes (Hospitalization)
  Sender: FDA-Public Use
  Company Number: GB-BRISTOL-MYERS SQUIBB COMPANY-15240575

PATIENT
  Age: 44 Year
  Sex: Female
  Weight: 80 kg

DRUGS (3)
  1. ABILIFY [Suspect]
     Indication: BIPOLAR DISORDER
     Route: 048
  2. CITALOPRAM HYDROBROMIDE [Concomitant]
     Route: 048
  3. METHADONE [Concomitant]
     Route: 048

REACTIONS (2)
  - CEREBRAL HAEMORRHAGE [None]
  - HYDROCEPHALUS [None]
